FAERS Safety Report 8189811-7 (Version None)
Quarter: 2012Q1

REPORT INFORMATION
  Report Type: 
  Country: None (occurrence: None)
  Receive Date: 20120307
  Receipt Date: 20110713
  Transmission Date: 20120608
  Serious: No
  Sender: FDA-Public Use
  Company Number: US-GLAXOSMITHKLINE-A0936696A

PATIENT
  Sex: Male

DRUGS (5)
  1. STATINS [Concomitant]
  2. HORIZANT [Suspect]
     Indication: RESTLESS LEGS SYNDROME
     Dosage: 1TAB AT NIGHT
     Route: 048
     Dates: start: 20110707, end: 20110711
  3. ROPINIROLE [Suspect]
     Indication: PRODUCT USED FOR UNKNOWN INDICATION
     Route: 065
  4. OMEPRAZOLE [Concomitant]
  5. ATENOLOL [Concomitant]

REACTIONS (2)
  - ILL-DEFINED DISORDER [None]
  - DRUG INEFFECTIVE [None]
